FAERS Safety Report 9617329 (Version 1)
Quarter: 2013Q4

REPORT INFORMATION
  Report Type: Spontaneous
  Country: US (occurrence: None)
  Receive Date: 20131009
  Receipt Date: 20131009
  Transmission Date: 20140711
  Serious: Yes (Death)
  Sender: FDA-Public Use
  Company Number: 2013AP008637

PATIENT
  Age: 49 Year
  Sex: Male

DRUGS (6)
  1. CLONAZEPAM TABLETS, USP [Suspect]
     Route: 048
  2. LAMOTRIGINE TABLETS [Suspect]
     Route: 048
  3. OMEPRAZOLE DELAYED-RELEASE CAPSULES, USP [Suspect]
     Route: 048
  4. HALOPERIDOL [Suspect]
     Route: 048
  5. ATENOLOL [Suspect]
     Route: 048
  6. VALPROIC ACID [Suspect]
     Route: 048

REACTIONS (1)
  - Completed suicide [None]
